FAERS Safety Report 8958944 (Version 2)
Quarter: 2012Q4

REPORT INFORMATION
  Report Type: 
  Country: CH (occurrence: CH)
  Receive Date: 20121212
  Receipt Date: 20121227
  Transmission Date: 20130627
  Serious: Yes (Hospitalization)
  Sender: FDA-Public Use
  Company Number: CH-JNJFOC-20121204411

PATIENT
  Age: 71 Year
  Sex: Male

DRUGS (7)
  1. XARELTO [Suspect]
     Indication: ATRIAL FIBRILLATION
     Route: 048
     Dates: start: 20120711, end: 20120918
  2. XARELTO [Suspect]
     Indication: CEREBROVASCULAR ACCIDENT PROPHYLAXIS
     Route: 048
     Dates: start: 20120711, end: 20120918
  3. CO-ENATEC [Concomitant]
     Indication: PRODUCT USED FOR UNKNOWN INDICATION
     Route: 048
  4. METFIN [Concomitant]
     Indication: PRODUCT USED FOR UNKNOWN INDICATION
     Route: 048
  5. INSULIN HUMAN INJECTION [Concomitant]
     Indication: PRODUCT USED FOR UNKNOWN INDICATION
     Route: 058
  6. AUGMENTIN [Concomitant]
     Indication: EPIDIDYMITIS
     Route: 065
  7. DALACINA [Concomitant]
     Indication: EPIDIDYMITIS
     Route: 065

REACTIONS (4)
  - Systemic inflammatory response syndrome [Recovering/Resolving]
  - Hepatic enzyme increased [Recovering/Resolving]
  - Thrombocytosis [Recovering/Resolving]
  - Cholestatic liver injury [Recovering/Resolving]
